FAERS Safety Report 11764540 (Version 1)
Quarter: 2015Q4

REPORT INFORMATION
  Report Type: Spontaneous
  Country: US (occurrence: US)
  Receive Date: 20151120
  Receipt Date: 20151120
  Transmission Date: 20160304
  Serious: No
  Sender: FDA-Public Use
  Company Number: US-ELI_LILLY_AND_COMPANY-US201212007896

PATIENT
  Sex: Female

DRUGS (3)
  1. FORTEO [Suspect]
     Active Substance: TERIPARATIDE
     Dosage: 20 UG, QOD
     Dates: start: 201301
  2. FORTEO [Suspect]
     Active Substance: TERIPARATIDE
     Dosage: 20 UG, QOD
  3. FORTEO [Suspect]
     Active Substance: TERIPARATIDE
     Indication: OSTEOPOROSIS
     Dosage: 20 UG, QD
     Dates: start: 201212

REACTIONS (10)
  - Abdominal pain upper [Unknown]
  - Paranasal sinus hypersecretion [Unknown]
  - Sleep disorder due to a general medical condition [Unknown]
  - Oropharyngeal pain [Unknown]
  - Decreased appetite [Recovered/Resolved]
  - Dyspepsia [Unknown]
  - Anxiety [Unknown]
  - Abdominal discomfort [Unknown]
  - Constipation [Unknown]
  - Nausea [Recovering/Resolving]
